FAERS Safety Report 9445973 (Version 2)
Quarter: 2013Q3

REPORT INFORMATION
  Report Type: Spontaneous
  Country: IT (occurrence: IT)
  Receive Date: 20130807
  Receipt Date: 20130923
  Transmission Date: 20140515
  Serious: Yes (Other)
  Sender: FDA-Public Use
  Company Number: IT-ROCHE-1258735

PATIENT
  Sex: Male

DRUGS (2)
  1. LUCENTIS [Suspect]
     Indication: AGE-RELATED MACULAR DEGENERATION
     Route: 050
     Dates: start: 20130319
  2. LUCENTIS [Suspect]
     Route: 050
     Dates: start: 20130621, end: 20130621

REACTIONS (1)
  - Retinal haemorrhage [Not Recovered/Not Resolved]
